FAERS Safety Report 20708571 (Version 1)
Quarter: 2022Q2

REPORT INFORMATION
  Report Type: Report from Study
  Country: TW (occurrence: TW)
  Receive Date: 20220414
  Receipt Date: 20220414
  Transmission Date: 20220720
  Serious: Yes (Hospitalization)
  Sender: FDA-Public Use
  Company Number: TW-ABBVIE-22K-153-4354079-00

PATIENT
  Age: 41 Year
  Sex: Male
  Weight: 62 kg

DRUGS (2)
  1. HUMIRA [Suspect]
     Active Substance: ADALIMUMAB
     Indication: Psoriatic arthropathy
     Route: 058
     Dates: start: 20180202, end: 20220311
  2. HUMIRA [Suspect]
     Active Substance: ADALIMUMAB
     Indication: Psoriatic arthropathy
     Route: 058
     Dates: start: 20151009

REACTIONS (7)
  - Epistaxis [Recovered/Resolved]
  - Nasal obstruction [Recovered/Resolved]
  - Rhinitis [Recovered/Resolved]
  - Rhinitis hypertrophic [Unknown]
  - Nasal septum deviation [Unknown]
  - Nasal oedema [Unknown]
  - Pallor [Unknown]

NARRATIVE: CASE EVENT DATE: 20220209
